FAERS Safety Report 9655230 (Version 2)
Quarter: 2013Q4

REPORT INFORMATION
  Report Type: Spontaneous
  Country: US (occurrence: US)
  Receive Date: 20131029
  Receipt Date: 20131029
  Transmission Date: 20140711
  Serious: Yes (Other)
  Sender: FDA-Public Use
  Company Number: US-NAPPMUNDI-USA-2012-0084417

PATIENT
  Age: 30 Year
  Sex: Male
  Weight: 108.84 kg

DRUGS (4)
  1. OXYCONTIN (NDA 22-272) [Suspect]
     Indication: NEURALGIA
     Dosage: UNK UNK, SEE TEXT
     Route: 048
  2. OXYCONTIN TABLETS [Suspect]
     Indication: NEURALGIA
     Dosage: UNK UNK, SEE TEXT
  3. NORCO [Suspect]
     Indication: NEURALGIA
     Dosage: 20 MG, TID
     Route: 048
  4. FENTANYL [Suspect]
     Indication: NEURALGIA
     Dosage: 50 MCG/HR, Q48H

REACTIONS (2)
  - Drug dependence [Not Recovered/Not Resolved]
  - Drug tolerance [Not Recovered/Not Resolved]
